FAERS Safety Report 8508029-9 (Version None)
Quarter: 2012Q3

REPORT INFORMATION
  Report Type: 
  Country: None (occurrence: None)
  Receive Date: 20120713
  Receipt Date: 20120706
  Transmission Date: 20120928
  Serious: Yes (Other)
  Sender: FDA-Public Use
  Company Number: PHEH2012US012176

PATIENT
  Sex: Female

DRUGS (34)
  1. MULTAQ [Concomitant]
     Dosage: 400 MG, UNK
  2. IPRATROPIUM BROMIDE [Concomitant]
     Dosage: 0.02 %, UNK
  3. NORCO [Concomitant]
     Dosage: UNK UKN, UNK
  4. IMITREX [Concomitant]
     Dosage: 100 MG, UNK
  5. CALCIUM CARBONATE [Concomitant]
     Dosage: 500 MG, UNK
     Route: 048
  6. ZINC SULFATE [Concomitant]
     Dosage: CHELATED ZINC 15 MG
  7. POTASSIUM FLOURIDE [Concomitant]
     Dosage: 750 MG, UNK
  8. XOPENEX [Concomitant]
     Dosage: UNK UKN, UNK
  9. ZANAFLEX [Concomitant]
     Dosage: 4 MG, UNK
  10. ALBUTEROL [Concomitant]
     Dosage: 0.06 %, UNK
  11. RESTASIS [Concomitant]
     Dosage: 0.05 MG, UNK
  12. CINNAMON [Concomitant]
     Dosage: 500 MG, UNK
  13. SUSTAINED EYE DROP (NO PRESERVATIVES) [Concomitant]
     Dosage: UNK UKN, UNK
  14. VIVELLE-DOT [Suspect]
     Dosage: 0.1 UKN, BIW
     Route: 062
  15. EPIPEN [Concomitant]
     Dosage: 0.3 MG, UNK
  16. VITAMIN E [Concomitant]
     Dosage: 1000 IU, UNK
  17. BRIMONIDINE TARTRATE [Concomitant]
     Dosage: 1 DROP EACH EYE PER DAY
  18. NITROSTAT [Concomitant]
     Dosage: 0.4 MG, UNK
  19. DEXILANT [Concomitant]
     Dosage: 60 MG, UNK
  20. VENTILAN [Concomitant]
     Dosage: UNK UKN, UNK
  21. XANAX [Concomitant]
     Dosage: 1 MG, UNK
     Route: 048
  22. ZOFRAN [Concomitant]
     Dosage: 4 MG, UNK
  23. VALIUM [Concomitant]
     Dosage: 10 MG, UNK
     Route: 048
  24. POTASSIUM CHLORIDE [Concomitant]
     Dosage: UNK UKN, UNK
  25. ASCORBIC ACID [Concomitant]
     Dosage: 1000 MG, UNK
  26. HIDROCORTIZON [Concomitant]
     Indication: SKIN BURNING SENSATION
     Dosage: UNK UKN, UNK
     Route: 061
  27. MAGNESIUM SULFATE [Concomitant]
     Dosage: 400 MG, UNK
     Route: 048
  28. MULTIVITAMINS, OTHER COMBINATIONS [Concomitant]
     Dosage: UNK UKN, UNK
  29. LYDEXCIUM [Concomitant]
     Dosage: UNK UKN, UNK
  30. CALCIUM [Concomitant]
     Dosage: UNK UKN, UNK
  31. LIDEX [Concomitant]
     Dosage: UNK UKN, UNK
  32. FIORICET [Concomitant]
     Dosage: UNK UKN, UNK
     Route: 048
  33. VITAMIN D [Concomitant]
     Dosage: 1000 IU, UNK
  34. VITAMIN D [Concomitant]
     Dosage: 500 IU, UNK

REACTIONS (6)
  - ERYTHEMA [None]
  - SKIN BURNING SENSATION [None]
  - URINE CALCIUM INCREASED [None]
  - RASH [None]
  - GLAUCOMA [None]
  - PRURITUS [None]
